FAERS Safety Report 7073373-1 (Version None)
Quarter: 2010Q4

REPORT INFORMATION
  Report Type: 
  Country: None (occurrence: None)
  Receive Date: 20101029
  Receipt Date: 20101018
  Transmission Date: 20110411
  Serious: No
  Sender: FDA-Public Use
  Company Number: CA-ELI_LILLY_AND_COMPANY-CA201010003795

PATIENT
  Sex: Male

DRUGS (15)
  1. ZYPREXA [Suspect]
     Indication: SCHIZOPHRENIA
     Dosage: 20 MG, DAILY (1/D)
     Route: 048
     Dates: start: 20000609
  2. ZYPREXA [Suspect]
     Dosage: 5 MG, DAILY (1/D)
     Route: 048
  3. MODECATE [Concomitant]
     Indication: SCHIZOPHRENIA
     Dosage: UNK, EVERY 2 WEEKS
     Route: 030
  4. COGENTIN [Concomitant]
     Indication: SCHIZOPHRENIA
     Dosage: 2 MG, DAILY (1/D)
     Route: 048
  5. IBUPROFEN [Concomitant]
     Indication: PAIN
     Dosage: UNK, AS NEEDED
     Route: 048
  6. NOZINAN [Concomitant]
     Dosage: 25 MG, DAILY (1/D)
     Route: 048
  7. SEROQUEL [Concomitant]
     Dosage: 50 MG, 2/D
     Route: 048
  8. STARNOC [Concomitant]
     Dosage: 1 D/F, DAILY (1/D)
     Route: 048
  9. RAMIPRIL [Concomitant]
     Dosage: 10 MG, DAILY (1/D)
     Route: 048
  10. CRESTOR [Concomitant]
     Dosage: 720 MG, DAILY (1/D)
     Route: 048
  11. HYDROCHLORZIDE [Concomitant]
     Dosage: 25 MG, DAILY (1/D)
     Route: 048
  12. ALLOPURINOL [Concomitant]
     Dosage: 300 MG, DAILY (1/D)
     Route: 048
  13. ASPIRIN [Concomitant]
     Dosage: 81 MG, DAILY (1/D)
     Route: 048
  14. CLONAZEPAM [Concomitant]
     Dosage: 0.5 MG, DAILY (1/D)
     Route: 048
  15. TEMAZEPAM [Concomitant]
     Dosage: 30 MG, AS NEEDED
     Route: 048

REACTIONS (8)
  - ACTIVATED PARTIAL THROMBOPLASTIN TIME SHORTENED [None]
  - ASPARTATE AMINOTRANSFERASE INCREASED [None]
  - BLOOD CREATINE PHOSPHOKINASE INCREASED [None]
  - HYPERLIPIDAEMIA [None]
  - HYPERTENSION [None]
  - TYPE 2 DIABETES MELLITUS [None]
  - VISION BLURRED [None]
  - WHITE BLOOD CELL COUNT INCREASED [None]
